FAERS Safety Report 25184102 (Version 1)
Quarter: 2025Q2

REPORT INFORMATION
  Report Type: Spontaneous
  Country: US (occurrence: None)
  Receive Date: 20250410
  Receipt Date: 20250410
  Transmission Date: 20250716
  Serious: Yes (Hospitalization)
  Sender: FDA-CTU
  Company Number: None

PATIENT
  Age: 73 Year
  Sex: Male
  Weight: 63.2 kg

DRUGS (3)
  1. CARBOPLATIN [Suspect]
     Active Substance: CARBOPLATIN
     Dates: end: 20230522
  2. DURVALUMAB [Suspect]
     Active Substance: DURVALUMAB
     Dates: end: 20230821
  3. TAXOL [Suspect]
     Active Substance: PACLITAXEL
     Dates: end: 20230522

REACTIONS (5)
  - Dyspnoea [None]
  - Cough [None]
  - Dysphonia [None]
  - Hypoxia [None]
  - Therapy cessation [None]

NARRATIVE: CASE EVENT DATE: 20230906
